FAERS Safety Report 6841545-4 (Version None)
Quarter: 2010Q3

REPORT INFORMATION
  Report Type: 
  Country: None (occurrence: None)
  Receive Date: 20100714
  Receipt Date: 20070820
  Transmission Date: 20110219
  Serious: No
  Sender: FDA-Public Use
  Company Number: US-PFIZER INC-2007057297

PATIENT
  Sex: Female
  Weight: 86.2 kg

DRUGS (7)
  1. CHANTIX [Suspect]
     Indication: SMOKING CESSATION THERAPY
     Dates: start: 20070627
  2. MELOXICAM [Suspect]
     Dates: start: 20070101
  3. ROBAXIN [Suspect]
     Dates: start: 20070101
  4. SOMA [Suspect]
     Dates: start: 20070705
  5. LORTAB [Suspect]
     Dates: start: 20070705
  6. CYMBALTA [Concomitant]
     Dates: start: 20070101
  7. OMEPRAZOLE [Concomitant]
     Indication: GASTROOESOPHAGEAL REFLUX DISEASE

REACTIONS (2)
  - RASH PRURITIC [None]
  - THERAPEUTIC RESPONSE DECREASED [None]
